FAERS Safety Report 8969662 (Version 2)
Quarter: 2013Q1

REPORT INFORMATION
  Report Type: Report from Study
  Country: JP (occurrence: JP)
  Receive Date: 20121217
  Receipt Date: 20130301
  Transmission Date: 20140127
  Serious: Yes (Other)
  Sender: FDA-Public Use
  Company Number: JP-009507513-1212JPN004964

PATIENT
  Age: 45 Year
  Sex: Female
  Weight: 49.8 kg

DRUGS (6)
  1. REFLEX [Suspect]
     Indication: DEPRESSION
     Dosage: 7.5 MG, QD
     Route: 048
     Dates: start: 20120924, end: 20121011
  2. REFLEX [Suspect]
     Dosage: 15 MG, QD
     Route: 048
     Dates: start: 20121012, end: 20121018
  3. REFLEX [Suspect]
     Dosage: 30 MG, QD
     Route: 048
     Dates: start: 20121019, end: 20121025
  4. REFLEX [Suspect]
     Dosage: 45 MG, QD
     Route: 048
     Dates: start: 20121026, end: 20121108
  5. RIVOTRIL [Suspect]
     Indication: DEPRESSION
     Dosage: UNK UNK,
     Route: 048
     Dates: start: 20121026, end: 20121108
  6. OLANZAPINE [Concomitant]
     Indication: DEPRESSION
     Dosage: 0.125 MG, QD
     Route: 048
     Dates: start: 20121005, end: 20121011

REACTIONS (1)
  - Overdose [Recovered/Resolved]
